FAERS Safety Report 24893130 (Version 2)
Quarter: 2025Q1

REPORT INFORMATION
  Report Type: Spontaneous
  Country: PT (occurrence: PT)
  Receive Date: 20250128
  Receipt Date: 20250207
  Transmission Date: 20250408
  Serious: Yes (Hospitalization, Other)
  Sender: CELLTRION
  Company Number: PT-AMGEN-PRTSP2024141418

PATIENT

DRUGS (17)
  1. BEVACIZUMAB [Suspect]
     Active Substance: BEVACIZUMAB
     Indication: Ovarian cancer metastatic
     Route: 065
  2. BEVACIZUMAB [Suspect]
     Active Substance: BEVACIZUMAB
     Indication: Serous cystadenocarcinoma ovary
  3. BEVACIZUMAB [Suspect]
     Active Substance: BEVACIZUMAB
     Indication: Metastases to pleura
  4. AMOXICILLIN\CLAVULANIC ACID [Suspect]
     Active Substance: AMOXICILLIN\CLAVULANIC ACID
     Indication: Lower respiratory tract infection
     Route: 065
  5. CARBOPLATIN [Suspect]
     Active Substance: CARBOPLATIN
     Indication: Metastases to pleura
     Route: 065
     Dates: start: 202004
  6. CARBOPLATIN [Suspect]
     Active Substance: CARBOPLATIN
     Indication: Serous cystadenocarcinoma ovary
     Route: 065
     Dates: start: 202204
  7. AZITHROMYCIN [Suspect]
     Active Substance: AZITHROMYCIN
     Indication: Lower respiratory tract infection
     Route: 065
  8. DOXORUBICIN [Suspect]
     Active Substance: DOXORUBICIN
     Indication: Metastases to pleura
     Route: 065
     Dates: start: 202204
  9. DOXORUBICIN [Suspect]
     Active Substance: DOXORUBICIN
     Indication: Serous cystadenocarcinoma ovary
  10. GEMCITABINE [Suspect]
     Active Substance: GEMCITABINE
     Indication: Serous cystadenocarcinoma ovary
     Route: 065
     Dates: start: 202204
  11. GEMCITABINE [Suspect]
     Active Substance: GEMCITABINE
     Indication: Metastases to pleura
  12. PACLITAXEL [Suspect]
     Active Substance: PACLITAXEL
     Indication: Metastases to pleura
     Route: 065
     Dates: start: 202004
  13. PACLITAXEL [Suspect]
     Active Substance: PACLITAXEL
     Indication: Serous cystadenocarcinoma ovary
     Route: 065
     Dates: start: 202308
  14. PACLITAXEL [Concomitant]
     Active Substance: PACLITAXEL
     Indication: Ovarian cancer metastatic
     Route: 065
     Dates: start: 202010
  15. CARBOPLATIN [Concomitant]
     Active Substance: CARBOPLATIN
     Indication: Ovarian cancer metastatic
     Route: 065
     Dates: start: 202010
  16. GEMCITABINE [Concomitant]
     Active Substance: GEMCITABINE
     Indication: Ovarian cancer metastatic
     Route: 065
     Dates: start: 202204
  17. DOXORUBICIN [Concomitant]
     Active Substance: DOXORUBICIN
     Indication: Ovarian cancer metastatic
     Route: 065

REACTIONS (6)
  - Organising pneumonia [Recovering/Resolving]
  - Ovarian cancer metastatic [Unknown]
  - Metastases to lymph nodes [Unknown]
  - Respiratory failure [Recovering/Resolving]
  - Disease progression [Not Recovered/Not Resolved]
  - Drug ineffective [Unknown]

NARRATIVE: CASE EVENT DATE: 20200401
